FAERS Safety Report 5307683-2 (Version None)
Quarter: 2007Q2

REPORT INFORMATION
  Report Type: 
  Country: None (occurrence: None)
  Receive Date: 20070425
  Receipt Date: 20070416
  Transmission Date: 20071010
  Serious: Yes (Other)
  Sender: FDA-Public Use
  Company Number: US-PFIZER INC-2007000878

PATIENT
  Sex: Female
  Weight: 59.4 kg

DRUGS (10)
  1. CHANTIX [Suspect]
  2. PAXIL [Concomitant]
     Indication: ANXIETY
  3. PROMETHAZINE HCL [Concomitant]
  4. RHINOCORT AQUA [Concomitant]
  5. ZYRTEC [Concomitant]
  6. ACETYLSALICYLIC ACID SRT [Concomitant]
  7. PREMARIN [Concomitant]
  8. LOPERAMIDE HCL [Concomitant]
  9. DILTIAZEM [Concomitant]
  10. DRUG, UNSPECIFIED [Concomitant]

REACTIONS (2)
  - NERVOUSNESS [None]
  - POLYURIA [None]
